FAERS Safety Report 14521026 (Version 1)
Quarter: 2018Q1

REPORT INFORMATION
  Report Type: Spontaneous
  Country: BR (occurrence: BR)
  Receive Date: 20180212
  Receipt Date: 20180212
  Transmission Date: 20180509
  Serious: Yes (Other)
  Sender: FDA-Public Use
  Company Number: BR-PFIZER INC-2018002632

PATIENT
  Age: 30 Year
  Sex: Male

DRUGS (4)
  1. EFFEXOR XR [Suspect]
     Active Substance: VENLAFAXINE HYDROCHLORIDE
     Indication: IRRITABLE BOWEL SYNDROME
     Dosage: 300 MG, DAILY
     Dates: start: 2003
  2. EFFEXOR XR [Suspect]
     Active Substance: VENLAFAXINE HYDROCHLORIDE
     Indication: GENERALISED ANXIETY DISORDER
  3. RIVOTRIL [Concomitant]
     Active Substance: CLONAZEPAM
     Indication: ANXIETY
     Dosage: UNK
  4. VALIUM [Concomitant]
     Active Substance: DIAZEPAM
     Indication: ANXIETY
     Dosage: UNK

REACTIONS (10)
  - Somnolence [Recovered/Resolved]
  - Atrophy [Not Recovered/Not Resolved]
  - Bruxism [Not Recovered/Not Resolved]
  - Drug-induced liver injury [Recovered/Resolved]
  - Tooth fracture [Recovered/Resolved]
  - Ear discomfort [Not Recovered/Not Resolved]
  - Fibromyalgia [Recovering/Resolving]
  - Insomnia [Recovering/Resolving]
  - Prescribed overdose [Recovered/Resolved]
  - Joint stiffness [Not Recovered/Not Resolved]

NARRATIVE: CASE EVENT DATE: 2008
